FAERS Safety Report 7790407-7 (Version None)
Quarter: 2011Q3

REPORT INFORMATION
  Report Type: 
  Country: None (occurrence: None)
  Receive Date: 20110930
  Receipt Date: 20110919
  Transmission Date: 20111222
  Serious: Yes (Other)
  Sender: FDA-Public Use
  Company Number: US-JNJFOC-20110901978

PATIENT
  Sex: Male
  Weight: 97.98 kg

DRUGS (17)
  1. REMICADE [Suspect]
     Route: 042
     Dates: start: 20110810
  2. REMICADE [Suspect]
     Indication: BACK PAIN
     Route: 042
     Dates: start: 20110628
  3. NAPROXEN [Concomitant]
     Indication: RHEUMATOID ARTHRITIS
     Route: 048
     Dates: start: 20060101
  4. DIOVAN [Concomitant]
     Indication: BLOOD PRESSURE
     Route: 048
     Dates: start: 20040101
  5. OMEPRAZOLE [Concomitant]
     Indication: GASTROOESOPHAGEAL REFLUX DISEASE
     Route: 048
     Dates: start: 20090101
  6. REMICADE [Suspect]
     Route: 042
     Dates: start: 20110628
  7. REMICADE [Suspect]
     Indication: ARTHRALGIA
     Route: 042
     Dates: start: 20110810
  8. REMICADE [Suspect]
     Route: 042
     Dates: start: 20110610
  9. SIMVASTATIN [Concomitant]
     Indication: BLOOD CHOLESTEROL
     Route: 048
     Dates: start: 20040101
  10. REMICADE [Suspect]
     Indication: ANKYLOSING SPONDYLITIS
     Route: 042
     Dates: start: 20110610
  11. FLUOCINONIDE [Concomitant]
     Indication: PSORIASIS
     Route: 061
     Dates: start: 20100101
  12. TRAZODONE HYDROCHLORIDE [Concomitant]
     Indication: SLEEP DISORDER
     Route: 048
     Dates: start: 20060101
  13. TRAMADOL HCL [Concomitant]
     Indication: PAIN
     Route: 048
     Dates: start: 20090101
  14. REMICADE [Suspect]
     Route: 042
     Dates: start: 20110610
  15. REMICADE [Suspect]
     Route: 042
     Dates: start: 20110810
  16. ATENOLOL [Concomitant]
     Indication: BLOOD PRESSURE
     Route: 048
     Dates: start: 20040101
  17. REMICADE [Suspect]
     Route: 042
     Dates: start: 20110628

REACTIONS (3)
  - OROMANDIBULAR DYSTONIA [None]
  - MOUTH ULCERATION [None]
  - PSORIASIS [None]
